FAERS Safety Report 17923287 (Version 1)
Quarter: 2020Q2

REPORT INFORMATION
  Report Type: Spontaneous
  Country: US (occurrence: US)
  Receive Date: 20200621
  Receipt Date: 20200621
  Transmission Date: 20200714
  Serious: Yes (Life-Threatening)
  Sender: FDA-Public Use
  Company Number: None

PATIENT
  Age: 50 Year
  Sex: Male
  Weight: 85.28 kg

DRUGS (1)
  1. ZOLPIDEM (ZOLPIDEM TARTRATE 12.5MG TAB,SA) [Suspect]
     Active Substance: ZOLPIDEM TARTRATE
     Indication: INSOMNIA
     Route: 048
     Dates: start: 20190508, end: 20191002

REACTIONS (10)
  - Middle insomnia [None]
  - Loss of employment [None]
  - Somnambulism [None]
  - Product substitution issue [None]
  - Road traffic accident [None]
  - Poor quality sleep [None]
  - Legal problem [None]
  - Impaired work ability [None]
  - Family stress [None]
  - Affective disorder [None]

NARRATIVE: CASE EVENT DATE: 20191002
